FAERS Safety Report 6212964-4 (Version None)
Quarter: 2009Q2

REPORT INFORMATION
  Report Type: 
  Country: None (occurrence: None)
  Receive Date: 20090602
  Receipt Date: 20090602
  Transmission Date: 20091009
  Serious: Yes (Other)
  Sender: FDA-Public Use
  Company Number: None

PATIENT
  Age: 41 Year
  Sex: Male
  Weight: 126.8 kg

DRUGS (2)
  1. ACETAMINOPHEN AND HYDROCODONE BITARTRATE [Suspect]
     Indication: BACK PAIN
     Dosage: 2 TAB PRN PO
     Route: 048
     Dates: start: 20090521, end: 20090523
  2. ACETAMINOPHEN AND HYDROCODONE BITARTRATE [Suspect]
     Indication: FALL
     Dosage: 2 TAB PRN PO
     Route: 048
     Dates: start: 20090521, end: 20090523

REACTIONS (10)
  - ACTIVITIES OF DAILY LIVING IMPAIRED [None]
  - ANXIETY [None]
  - COUGH [None]
  - DIZZINESS [None]
  - DYSPEPSIA [None]
  - DYSPNOEA [None]
  - IMPAIRED WORK ABILITY [None]
  - INSOMNIA [None]
  - PAIN [None]
  - WHEEZING [None]
